FAERS Safety Report 6832805-1 (Version None)
Quarter: 2010Q3

REPORT INFORMATION
  Report Type: 
  Country: None (occurrence: None)
  Receive Date: 20100712
  Receipt Date: 20070321
  Transmission Date: 20110219
  Serious: No
  Sender: FDA-Public Use
  Company Number: US-PFIZER INC-2007023403

PATIENT
  Sex: Female
  Weight: 68.04 kg

DRUGS (4)
  1. CHANTIX [Suspect]
     Indication: SMOKING CESSATION THERAPY
     Dates: start: 20070301
  2. LEXAPRO [Concomitant]
  3. CRESTOR [Concomitant]
  4. TOPAMAX [Concomitant]
     Indication: MIGRAINE PROPHYLAXIS

REACTIONS (2)
  - DECREASED APPETITE [None]
  - NAUSEA [None]
